FAERS Safety Report 7639315-2 (Version None)
Quarter: 2011Q3

REPORT INFORMATION
  Report Type: 
  Country: None (occurrence: None)
  Receive Date: 20110727
  Receipt Date: 20110718
  Transmission Date: 20111222
  Serious: Yes (Other)
  Sender: FDA-Public Use
  Company Number: PHHY2011DE44642

PATIENT
  Sex: Female

DRUGS (8)
  1. VALSARTAN [Concomitant]
     Dosage: 80 MG/DAY
     Route: 048
  2. CABERGOLINE [Concomitant]
     Dosage: 0.5 MG PER DAY
     Route: 065
     Dates: start: 20040101
  3. OMEPRAZOLE [Concomitant]
     Dosage: UNK UKN, UNK
     Route: 065
  4. NIFEDIPINE [Concomitant]
     Dosage: 5 MG PER DAY
     Route: 048
  5. SANDOSTATIN LAR [Suspect]
     Dates: start: 20061001
  6. CALCIMAGON-D3 [Concomitant]
     Dosage: UNK UKN, UNK
     Route: 065
  7. HYDROCORTISONE [Concomitant]
     Dosage: 15 MG
     Route: 048
     Dates: start: 20040101
  8. ALENDRONATE SODIUM [Concomitant]
     Dosage: 70 MG/ WEEK
     Route: 048

REACTIONS (1)
  - SQUAMOUS CELL CARCINOMA [None]
